FAERS Safety Report 17457904 (Version 4)
Quarter: 2020Q2

REPORT INFORMATION
  Report Type: Spontaneous
  Country: US (occurrence: US)
  Receive Date: 20200225
  Receipt Date: 20200527
  Transmission Date: 20200713
  Serious: Yes (Other)
  Sender: FDA-Public Use
  Company Number: US-COVIS PHARMA B.V.-2020COV00081

PATIENT
  Sex: Male
  Weight: 10 kg

DRUGS (11)
  1. SYNAGIS [Suspect]
     Active Substance: PALIVIZUMAB
     Indication: CHRONIC RESPIRATORY DISEASE
  2. PULMICORT TURBUHALER [Suspect]
     Active Substance: BUDESONIDE
     Dosage: UNK
     Route: 055
  3. SYNAGIS [Suspect]
     Active Substance: PALIVIZUMAB
     Indication: PREMATURE BABY
     Dosage: 15 MG/KG, 1X/MONTH
     Route: 030
  4. KEPPRA [Concomitant]
     Active Substance: LEVETIRACETAM
  5. ALBUTEROL. [Concomitant]
     Active Substance: ALBUTEROL
  6. CHILDRENS TYLENOL [Concomitant]
     Active Substance: ACETAMINOPHEN
  7. BACLOFEN. [Concomitant]
     Active Substance: BACLOFEN
  8. OMEPRAZOLE MAGNESIUM. [Suspect]
     Active Substance: OMEPRAZOLE MAGNESIUM
     Dosage: UNK
     Route: 048
  9. AZITHROMYCIN ANHYDROUS. [Concomitant]
     Active Substance: AZITHROMYCIN ANHYDROUS
  10. LACTULOSE. [Concomitant]
     Active Substance: LACTULOSE
  11. MONTELUKAST SODIUM. [Concomitant]
     Active Substance: MONTELUKAST SODIUM

REACTIONS (1)
  - Cerebral palsy [Unknown]
